FAERS Safety Report 9825175 (Version 1)
Quarter: 2013Q4

REPORT INFORMATION
  Report Type: Spontaneous
  Country: US (occurrence: None)
  Receive Date: 20131028
  Receipt Date: 20131028
  Transmission Date: 20140711
  Serious: No
  Sender: FDA-Public Use
  Company Number: 2013US002334

PATIENT
  Age: 57 Year
  Sex: Female
  Weight: 113 kg

DRUGS (3)
  1. ICLUSIG [Suspect]
     Route: 048
     Dates: start: 20130815, end: 20130827
  2. METOPROLOL (METROPROLOL) [Concomitant]
  3. CHLORTHALIDONE (CHLORTHALIDONE) [Concomitant]

REACTIONS (5)
  - Abdominal pain upper [None]
  - Constipation [None]
  - Blood pressure increased [None]
  - Back pain [None]
  - Insomnia [None]
